FAERS Safety Report 9741007 (Version 1)
Quarter: 2013Q4

REPORT INFORMATION
  Report Type: Spontaneous
  Country: ES (occurrence: ES)
  Receive Date: 20131209
  Receipt Date: 20131209
  Transmission Date: 20140711
  Serious: Yes (Death, Hospitalization)
  Sender: FDA-Public Use
  Company Number: PHHY2013ES138749

PATIENT
  Age: 78 Year
  Sex: Female

DRUGS (1)
  1. METFORMIN [Suspect]
     Indication: TYPE 2 DIABETES MELLITUS
     Dosage: 850 MG, QD

REACTIONS (23)
  - Multi-organ failure [Fatal]
  - Respiratory failure [Unknown]
  - Blood creatinine increased [Unknown]
  - Blood urea increased [Unknown]
  - Bundle branch block right [Unknown]
  - Haemodynamic instability [Unknown]
  - Anuria [Unknown]
  - Lactic acidosis [Unknown]
  - Metabolic acidosis [Unknown]
  - Asthenia [Unknown]
  - Abdominal pain upper [Unknown]
  - Blood pressure decreased [Unknown]
  - Bradycardia [Unknown]
  - Hyperhidrosis [Unknown]
  - Anion gap increased [Unknown]
  - Blood lactic acid increased [Unknown]
  - Blood pH decreased [Unknown]
  - Muscular weakness [Unknown]
  - Discomfort [Unknown]
  - Blood potassium increased [Unknown]
  - Blood bicarbonate decreased [Unknown]
  - Pain [Unknown]
  - Diarrhoea [Unknown]
